FAERS Safety Report 11638408 (Version 1)
Quarter: 2015Q4

REPORT INFORMATION
  Report Type: Spontaneous
  Country: BR (occurrence: BR)
  Receive Date: 20151016
  Receipt Date: 20151016
  Transmission Date: 20160304
  Serious: Yes (Other)
  Sender: FDA-Public Use
  Company Number: BR-ASTRAZENECA-2015SE99697

PATIENT
  Age: 40 Year
  Sex: Male

DRUGS (17)
  1. METFORMIN [Concomitant]
     Active Substance: METFORMIN HYDROCHLORIDE
  2. TESTOSTERONE UNDECANOATE [Concomitant]
     Active Substance: TESTOSTERONE UNDECANOATE
     Dosage: QUARTERLY
  3. ENALAPRIL [Concomitant]
     Active Substance: ENALAPRIL
     Indication: HYPERTENSION
  4. NPH INSULIN [Concomitant]
     Active Substance: INSULIN BEEF
     Dosage: 44 U IN MORNING, 34 U AT BEDTIME
  5. NPH INSULIN [Concomitant]
     Active Substance: INSULIN BEEF
     Dosage: 20/20
  6. NPH INSULIN [Concomitant]
     Active Substance: INSULIN BEEF
  7. ALISKIREN HCT [Concomitant]
  8. VILDAGLIPTIN [Concomitant]
     Active Substance: VILDAGLIPTIN
  9. METFORMIN [Concomitant]
     Active Substance: METFORMIN HYDROCHLORIDE
  10. SIMVASTATIN. [Concomitant]
     Active Substance: SIMVASTATIN
     Indication: DYSLIPIDAEMIA
  11. GLICLAZIDE [Concomitant]
     Active Substance: GLICLAZIDE
  12. VARDENAFIL [Concomitant]
     Active Substance: VARDENAFIL
     Indication: SEXUAL DYSFUNCTION
  13. LIRAGLUTIDE [Concomitant]
     Active Substance: LIRAGLUTIDE
     Route: 058
  14. DAPAGLIFLOZIN [Suspect]
     Active Substance: DAPAGLIFLOZIN
     Route: 048
  15. GLIBENCLAMIDE [Concomitant]
     Active Substance: GLYBURIDE
  16. HCTZ [Concomitant]
     Active Substance: HYDROCHLOROTHIAZIDE
     Indication: HYPERTENSION
  17. ASA [Concomitant]
     Active Substance: ASPIRIN
     Indication: HYPERTENSION

REACTIONS (1)
  - Hyperglycaemia [Unknown]
